FAERS Safety Report 10947347 (Version 1)
Quarter: 2015Q1

REPORT INFORMATION
  Report Type: Spontaneous
  Country: US (occurrence: None)
  Receive Date: 20150212
  Receipt Date: 20150212
  Transmission Date: 20150721
  Serious: No
  Sender: FDA-Public Use
  Company Number: TPA2012A00447

PATIENT
  Age: 55 Year
  Sex: Male
  Weight: 108.86 kg

DRUGS (3)
  1. FUROSEMIDE. [Concomitant]
     Active Substance: FUROSEMIDE
  2. ULORIC [Suspect]
     Active Substance: FEBUXOSTAT
     Indication: GOUT
     Route: 048
     Dates: start: 20111222, end: 20120107
  3. ACUPRIL (QUINAPRIL HYDROCHLORIDE) [Concomitant]

REACTIONS (3)
  - Dyspnoea [None]
  - Somnolence [None]
  - Chest discomfort [None]

NARRATIVE: CASE EVENT DATE: 201201
